FAERS Safety Report 17153468 (Version 1)
Quarter: 2019Q4

REPORT INFORMATION
  Report Type: Spontaneous
  Country: US (occurrence: US)
  Receive Date: 20191213
  Receipt Date: 20191213
  Transmission Date: 20200122
  Serious: No
  Sender: FDA-Public Use
  Company Number: NVSC2019US013246

PATIENT
  Sex: Female

DRUGS (1)
  1. MAYZENT [Suspect]
     Active Substance: SIPONIMOD
     Indication: PROGRESSIVE MULTIPLE SCLEROSIS
     Dosage: 2 MG/KG, QD
     Route: 048

REACTIONS (1)
  - Dyspnoea [Recovering/Resolving]
